FAERS Safety Report 8901745 (Version 1)
Quarter: 2012Q4

REPORT INFORMATION
  Report Type: Spontaneous
  Country: DK (occurrence: None)
  Receive Date: 20121101
  Receipt Date: 20121101
  Transmission Date: 20130627
  Serious: Yes (Hospitalization)
  Sender: FDA-Public Use
  Company Number: 2012MA012771

PATIENT
  Age: 2 Year
  Sex: Female

DRUGS (1)
  1. IBUPROFEN [Suspect]
     Dosage: 20 mg/ml;1x;po
     Route: 048
     Dates: start: 20120829, end: 20120829

REACTIONS (2)
  - Abdominal discomfort [None]
  - Accidental exposure to product by child [None]
